FAERS Safety Report 7183605-7 (Version None)
Quarter: 2010Q4

REPORT INFORMATION
  Report Type: 
  Country: None (occurrence: None)
  Receive Date: 20101220
  Receipt Date: 20101220
  Transmission Date: 20110411
  Serious: Yes (Hospitalization)
  Sender: FDA-Public Use
  Company Number: None

PATIENT
  Age: 62 Year
  Sex: Female
  Weight: 59.3 kg

DRUGS (20)
  1. ASA [Suspect]
     Indication: CORONARY ARTERY DISEASE
     Dosage: 81MG DAILY PO  CHRONIC
     Route: 048
  2. PLAVIX [Suspect]
     Indication: CORONARY ARTERIAL STENT INSERTION
     Dosage: 75MG DAILY PO  CHRONIC
     Route: 048
  3. POTASSIUM CHLORIDE [Concomitant]
  4. PROTONIX [Concomitant]
  5. RAMIPRIL [Concomitant]
  6. SERTRALINE [Concomitant]
  7. TRAZODONE [Concomitant]
  8. ASCORBIC ACID [Concomitant]
  9. CARTIA XT [Concomitant]
  10. ANUSOL HC [Concomitant]
  11. PLAVIX [Concomitant]
  12. VIT B12 [Concomitant]
  13. FERROUS SULFATE [Concomitant]
  14. FOLIC ACID [Concomitant]
  15. SSI [Concomitant]
  16. MAALOX [Concomitant]
  17. DUONEB [Concomitant]
  18. MEGACE [Concomitant]
  19. SIMVASTATIN [Concomitant]
  20. PREDNISONE [Concomitant]

REACTIONS (3)
  - ANAL FISTULA [None]
  - GASTROINTESTINAL HAEMORRHAGE [None]
  - TACHYCARDIA [None]
